FAERS Safety Report 12690573 (Version 1)
Quarter: 2016Q3

REPORT INFORMATION
  Report Type: Report from Study
  Country: RO (occurrence: RO)
  Receive Date: 20160826
  Receipt Date: 20160826
  Transmission Date: 20161109
  Serious: Yes (Hospitalization)
  Sender: FDA-Public Use
  Company Number: RO-ABBVIE-16K-135-1708934-00

PATIENT
  Age: 80 Year
  Sex: Male

DRUGS (1)
  1. DUODOPA [Suspect]
     Active Substance: CARBIDOPA\LEVODOPA
     Indication: PARKINSON^S DISEASE
     Dosage: MD - 11 ML, CR- 5 ML/H, ED - 2,5 ML
     Route: 050
     Dates: start: 20150317

REACTIONS (10)
  - Cerebral haemorrhage [Unknown]
  - Eye contusion [Unknown]
  - Contusion [Unknown]
  - Chest wall haematoma [Unknown]
  - Haematoma [Unknown]
  - Fall [Unknown]
  - Head injury [Unknown]
  - Loss of consciousness [Recovered/Resolved]
  - Eyelid oedema [Unknown]
  - Visual field defect [Unknown]

NARRATIVE: CASE EVENT DATE: 20160820
